FAERS Safety Report 5798658-8 (Version None)
Quarter: 2008Q2

REPORT INFORMATION
  Report Type: 
  Country: None (occurrence: None)
  Receive Date: 20080601
  Receipt Date: 20080304
  Transmission Date: 20081010
  Serious: No
  Sender: FDA-Public Use
  Company Number: US200801006714

PATIENT
  Age: 82 Year
  Sex: Female

DRUGS (15)
  1. BYETTA [Suspect]
     Indication: TYPE 2 DIABETES MELLITUS
     Dosage: 5 UG, 2/D, SUBCUTANEOUS ; 5 UG, 2/D, SUBCUTANEOUS
     Route: 058
     Dates: start: 20061201, end: 20070101
  2. BYETTA [Suspect]
     Indication: TYPE 2 DIABETES MELLITUS
     Dosage: 5 UG, 2/D, SUBCUTANEOUS ; 5 UG, 2/D, SUBCUTANEOUS
     Route: 058
     Dates: start: 20071101
  3. AMARYL [Concomitant]
  4. SYNTHROID [Concomitant]
  5. PRILOSEC [Concomitant]
  6. ALLEGRA [Concomitant]
  7. MICARDIS [Concomitant]
  8. HYDROCHLOROTHIAZIDE [Concomitant]
  9. SOTALOL HCL [Concomitant]
  10. CALCIUM WITH VITAMIN D (CALCIUM PHOSPHATE, CALCIUM SODIUM LACTATE, ERG [Concomitant]
  11. COUMADIN [Concomitant]
  12. PRAVACHOL [Concomitant]
  13. ZETIA [Concomitant]
  14. AVANDIA [Concomitant]
  15. INSULIN (INSULIN) [Concomitant]

REACTIONS (1)
  - BLOOD PRESSURE INCREASED [None]
